FAERS Safety Report 9641993 (Version 2)
Quarter: 2013Q4

REPORT INFORMATION
  Report Type: Spontaneous
  Country: US (occurrence: None)
  Receive Date: 20131022
  Receipt Date: 20131101
  Transmission Date: 20140711
  Serious: Yes (Other)
  Sender: FDA-Public Use
  Company Number: 2013-003210

PATIENT
  Age: 73 Year
  Sex: Female

DRUGS (5)
  1. ENABLEX [Suspect]
     Route: 048
     Dates: start: 2013
  2. ENABLEX [Suspect]
     Route: 048
     Dates: start: 201308, end: 201308
  3. SYNTHROID (ILEVOTHYROXINE SODIUM) [Concomitant]
  4. PRAVASTATIN (PRAVASTATIN) [Concomitant]
  5. VITAMIN D2 (ERGOCALCIFEROL) [Concomitant]

REACTIONS (9)
  - Bladder prolapse [None]
  - Cystitis [None]
  - Burning sensation [None]
  - Nocturia [None]
  - Vaginal prolapse [None]
  - Cystocele [None]
  - Rectocele [None]
  - Enterocele [None]
  - Escherichia test positive [None]
